FAERS Safety Report 23554640 (Version 1)
Quarter: 2024Q1

REPORT INFORMATION
  Report Type: Spontaneous
  Country: US (occurrence: None)
  Receive Date: 20240222
  Receipt Date: 20240222
  Transmission Date: 20240409
  Serious: Yes (Hospitalization)
  Sender: FDA-Public Use
  Company Number: None

PATIENT
  Sex: Female
  Weight: 146 kg

DRUGS (5)
  1. PEMBROLIZUMAB [Suspect]
     Active Substance: PEMBROLIZUMAB
     Dates: end: 20240108
  2. AMITRIPTYLINE [Concomitant]
     Active Substance: AMITRIPTYLINE
  3. CYCLOBENZAPRINE [Concomitant]
     Active Substance: CYCLOBENZAPRINE
  4. oxycodone/acetaminophen [Concomitant]
  5. PREGABALINE [Concomitant]

REACTIONS (5)
  - Road traffic accident [None]
  - Memory impairment [None]
  - Euphoric mood [None]
  - Muscle twitching [None]
  - Syncope [None]

NARRATIVE: CASE EVENT DATE: 20240215
